FAERS Safety Report 9368771 (Version 1)
Quarter: 2013Q2

REPORT INFORMATION
  Report Type: Spontaneous
  Country: TR (occurrence: TR)
  Receive Date: 20130626
  Receipt Date: 20130626
  Transmission Date: 20140414
  Serious: Yes (Other)
  Sender: FDA-Public Use
  Company Number: PHHY2013TR063330

PATIENT
  Age: 36 Year
  Sex: Male

DRUGS (4)
  1. BUPROPION [Suspect]
     Indication: SMOKING CESSATION THERAPY
     Dosage: 300 MG, PER DAY
  2. RISPERIDONE [Suspect]
     Indication: SCHIZOAFFECTIVE DISORDER
     Dosage: 3 MG, PER DAY
  3. RISPERIDONE [Suspect]
     Dosage: 6 MG, PER DAY
  4. VALPROIC ACID [Concomitant]
     Indication: SCHIZOAFFECTIVE DISORDER
     Dosage: 1000 MG, PER DAY

REACTIONS (10)
  - Extrapyramidal disorder [Unknown]
  - Substance-induced psychotic disorder [Recovering/Resolving]
  - Logorrhoea [Recovering/Resolving]
  - Elevated mood [Recovering/Resolving]
  - Abnormal behaviour [Recovering/Resolving]
  - Delusion of grandeur [Recovering/Resolving]
  - Ideas of reference [Recovering/Resolving]
  - Persecutory delusion [Recovering/Resolving]
  - Hallucinations, mixed [Recovering/Resolving]
  - Insomnia [Recovering/Resolving]
